FAERS Safety Report 7638640-9 (Version None)
Quarter: 2011Q3

REPORT INFORMATION
  Report Type: 
  Country: None (occurrence: None)
  Receive Date: 20110727
  Receipt Date: 20110725
  Transmission Date: 20111222
  Serious: Yes (Life-Threatening, Hospitalization, Other)
  Sender: FDA-Public Use
  Company Number: JP-PFIZER INC-2011167823

PATIENT
  Age: 66 Year
  Sex: Female

DRUGS (6)
  1. LYRICA [Suspect]
     Dosage: 450 MG/ DAY
     Route: 048
     Dates: start: 20110707, end: 20110719
  2. CELECOXIB [Concomitant]
     Indication: PAIN
     Dosage: 300 MG/DAY
     Route: 048
     Dates: end: 20110719
  3. DEPAS [Concomitant]
     Indication: INSOMNIA
     Dosage: 1 MG, UNK
     Route: 048
     Dates: end: 20110719
  4. CYTOTEC [Concomitant]
     Indication: GASTRIC ULCER
     Dosage: 600 UG/DAY
     Route: 048
     Dates: end: 20110719
  5. LYRICA [Suspect]
     Indication: PAIN
     Dosage: 300 MG/DAY
     Route: 048
     Dates: start: 20110623, end: 20110706
  6. LANSOPRAZOLE [Concomitant]
     Indication: GASTRIC ULCER
     Dosage: 30 MG/DAY
     Route: 048
     Dates: end: 20110719

REACTIONS (2)
  - HYPOGLYCAEMIA [None]
  - LOSS OF CONSCIOUSNESS [None]
